FAERS Safety Report 6942606-1 (Version None)
Quarter: 2010Q3

REPORT INFORMATION
  Report Type: 
  Country: None (occurrence: None)
  Receive Date: 20100823
  Receipt Date: 20100813
  Transmission Date: 20110219
  Serious: Yes (Hospitalization)
  Sender: FDA-Public Use
  Company Number: 2009SP031231

PATIENT
  Age: 62 Year
  Sex: Male

DRUGS (6)
  1. REBETOL [Suspect]
     Indication: HEPATITIS C
     Dosage: 4 DF;QD;PO
     Route: 048
     Dates: start: 20090511, end: 20100322
  2. BLINDED SCH 503034 [Suspect]
     Indication: HEPATITIS C
     Dosage: 4 DF;TID;PO
     Route: 048
     Dates: start: 20090605, end: 20100325
  3. PEGASYS [Suspect]
     Indication: HEPATITIS C
     Dosage: 180 MCG;QW;SC
     Route: 058
     Dates: start: 20090511, end: 20100322
  4. MCP /00041901/ [Concomitant]
  5. MULTIBIONTA /00111701/ [Concomitant]
  6. EPOGEN [Concomitant]

REACTIONS (10)
  - ANAEMIA [None]
  - BRONCHITIS [None]
  - DIARRHOEA [None]
  - ELECTROCARDIOGRAM REPOLARISATION ABNORMALITY [None]
  - GENERAL PHYSICAL HEALTH DETERIORATION [None]
  - LEFT VENTRICULAR HYPERTROPHY [None]
  - LEUKOPENIA [None]
  - PNEUMONIA HAEMOPHILUS [None]
  - SPUTUM DISCOLOURED [None]
  - WEIGHT DECREASED [None]
